FAERS Safety Report 6757773-2 (Version None)
Quarter: 2010Q2

REPORT INFORMATION
  Report Type: 
  Country: None (occurrence: None)
  Receive Date: 20100607
  Receipt Date: 20100525
  Transmission Date: 20101027
  Serious: Yes (Other)
  Sender: FDA-Public Use
  Company Number: FR-RB-010409-10

PATIENT
  Age: 20 Month
  Sex: Female

DRUGS (1)
  1. SUBUTEX [Suspect]
     Indication: DRUG USE FOR UNKNOWN INDICATION
     Dosage: DOSING DETAILS UNKNOWN
     Route: 065

REACTIONS (3)
  - ACCIDENTAL EXPOSURE [None]
  - HYPOTONIA [None]
  - SOMNOLENCE [None]
